FAERS Safety Report 13419439 (Version 3)
Quarter: 2024Q3

REPORT INFORMATION
  Report Type: Spontaneous
  Country: FR (occurrence: FR)
  Receive Date: 20170407
  Receipt Date: 20240710
  Transmission Date: 20241017
  Serious: Yes (Death, Hospitalization, Other)
  Sender: RANBAXY
  Company Number: FR-MLMSERVICE-20170216-0614450-1

PATIENT
  Age: 63 Year
  Sex: Male

DRUGS (3)
  1. GEMCITABINE [Suspect]
     Active Substance: GEMCITABINE
     Indication: Non-small cell lung cancer metastatic
     Dosage: 1000 MG/M2, DAY 1 AND DAY 8
     Route: 065
  2. GEMCITABINE [Suspect]
     Active Substance: GEMCITABINE
     Dosage: 1250 MG/M2, EVERY 3 WEEKS
     Route: 065
  3. CARBOPLATIN [Concomitant]
     Active Substance: CARBOPLATIN
     Indication: Non-small cell lung cancer metastatic
     Dosage: 700 MG/M2, AREA UNDER THE CURVE, 5, EVERY 3 WEEKS
     Route: 065

REACTIONS (2)
  - Haemolytic uraemic syndrome [Fatal]
  - Thrombotic microangiopathy [Fatal]
